FAERS Safety Report 4636284-4 (Version None)
Quarter: 2005Q2

REPORT INFORMATION
  Report Type: 
  Country: None (occurrence: None)
  Receive Date: 20050415
  Receipt Date: 20040617
  Transmission Date: 20051028
  Serious: Yes (Other)
  Sender: FDA-Public Use
  Company Number: US-BRISTOL-MYERS SQUIBB COMPANY-12617999

PATIENT
  Age: 53 Year
  Sex: Female
  Weight: 107 kg

DRUGS (10)
  1. CARBOPLATIN [Suspect]
     Indication: LUNG NEOPLASM MALIGNANT
     Route: 042
     Dates: start: 20040617, end: 20040617
  2. TAXOTERE [Concomitant]
  3. ASPIRIN [Concomitant]
  4. LIPITOR [Concomitant]
  5. ACCUPRIL [Concomitant]
  6. HYDROCODONE BITARTRATE [Concomitant]
  7. INHALERS [Concomitant]
  8. DILTIAZEM HCL [Concomitant]
  9. DECADRON [Concomitant]
     Indication: PREMEDICATION
     Route: 042
     Dates: start: 20040617
  10. ANZEMET [Concomitant]
     Indication: PREMEDICATION
     Route: 042
     Dates: start: 20040617

REACTIONS (3)
  - ERYTHEMA [None]
  - HYPOTENSION [None]
  - THROAT TIGHTNESS [None]
